FAERS Safety Report 24817004 (Version 3)
Quarter: 2025Q2

REPORT INFORMATION
  Report Type: Spontaneous
  Country: US (occurrence: US)
  Receive Date: 20250108
  Receipt Date: 20250624
  Transmission Date: 20250717
  Serious: Yes (Hospitalization, Other)
  Sender: CSL BEHRING
  Company Number: US-BEH-2025190913

PATIENT
  Age: 48 Year
  Sex: Female

DRUGS (5)
  1. HIZENTRA [Suspect]
     Active Substance: HUMAN IMMUNOGLOBULIN G
     Indication: Immunodeficiency common variable
     Dosage: 20 G, QW(STRENGTH 0.2GM/ML)
     Route: 042
     Dates: start: 202002
  2. HIZENTRA [Suspect]
     Active Substance: HUMAN IMMUNOGLOBULIN G
     Indication: Primary immunodeficiency syndrome
     Dosage: 20 G, QW(STRENGTH 0.2GM/ML)
     Route: 058
     Dates: start: 202002
  3. HYRIMOZ [Concomitant]
     Active Substance: ADALIMUMAB-ADAZ
  4. ICATIBANT [Concomitant]
     Active Substance: ICATIBANT ACETATE
  5. TEZSPIRE [Concomitant]
     Active Substance: TEZEPELUMAB-EKKO

REACTIONS (8)
  - Laryngeal oedema [Unknown]
  - Abdominal distension [Recovered/Resolved]
  - Pharyngeal swelling [Recovered/Resolved]
  - Unevaluable event [Unknown]
  - Laryngeal oedema [Unknown]
  - Gastrointestinal disorder [Unknown]
  - Off label use [Unknown]
  - Swelling face [Unknown]

NARRATIVE: CASE EVENT DATE: 20241226
